FAERS Safety Report 24995156 (Version 1)
Quarter: 2025Q1

REPORT INFORMATION
  Report Type: Report from Study
  Country: US (occurrence: US)
  Receive Date: 20250221
  Receipt Date: 20250221
  Transmission Date: 20250409
  Serious: Yes (Other)
  Sender: ALEXION PHARMACEUTICALS
  Company Number: 202410USA009106US

PATIENT

DRUGS (2)
  1. BENRALIZUMAB [Suspect]
     Active Substance: BENRALIZUMAB
     Indication: Eosinophilia
     Dosage: 30 MILLIGRAM, Q8W
  2. TYVASO [Concomitant]
     Active Substance: TREPROSTINIL
     Route: 065

REACTIONS (2)
  - Pulmonary fibrosis [Unknown]
  - Dyspnoea [Unknown]
